FAERS Safety Report 9964121 (Version 1)
Quarter: 2014Q1

REPORT INFORMATION
  Report Type: Spontaneous
  Country: JP (occurrence: JP)
  Receive Date: 20140305
  Receipt Date: 20140305
  Transmission Date: 20141002
  Serious: Yes (Hospitalization)
  Sender: FDA-Public Use
  Company Number: PHHY2014JP026664

PATIENT
  Age: 80 Year
  Sex: Female

DRUGS (2)
  1. LOCHOL [Suspect]
     Indication: HYPERCHOLESTEROLAEMIA
     Dosage: 30 MG, QD
     Route: 048
     Dates: end: 20140128
  2. CRESTOR [Concomitant]
     Dosage: UNK UKN, UNK

REACTIONS (1)
  - Subdural haematoma [Recovered/Resolved]
